FAERS Safety Report 18886051 (Version 1)
Quarter: 2021Q1

REPORT INFORMATION
  Report Type: Spontaneous
  Country: US (occurrence: US)
  Receive Date: 20210212
  Receipt Date: 20210212
  Transmission Date: 20210420
  Serious: Yes (Other)
  Sender: FDA-Public Use
  Company Number: US-TEVA-2021-US-1878461

PATIENT
  Age: 57 Year
  Sex: Male

DRUGS (5)
  1. FENOFIBRATE. [Suspect]
     Active Substance: FENOFIBRATE
     Indication: PRODUCT USED FOR UNKNOWN INDICATION
     Route: 065
  2. BOTOX [Suspect]
     Active Substance: ONABOTULINUMTOXINA
     Indication: PRODUCT USED FOR UNKNOWN INDICATION
     Route: 065
  3. COPAXONE [Suspect]
     Active Substance: GLATIRAMER ACETATE
     Indication: PRODUCT USED FOR UNKNOWN INDICATION
     Dosage: UNKNOWN FORM STRENGTH AND ROUTE OF ADMINISTRATION
     Route: 065
  4. AMPYRA [Suspect]
     Active Substance: DALFAMPRIDINE
     Indication: MULTIPLE SCLEROSIS
  5. AMPYRA [Suspect]
     Active Substance: DALFAMPRIDINE
     Indication: GAIT DISTURBANCE
     Dosage: 20 MILLIGRAM DAILY;
     Route: 065
     Dates: start: 20150705

REACTIONS (10)
  - Blood triglycerides increased [Unknown]
  - Pain [Unknown]
  - Abdominal discomfort [Unknown]
  - Multiple sclerosis [Unknown]
  - Blood creatinine increased [Unknown]
  - Glomerular filtration rate decreased [Recovered/Resolved]
  - Drug hypersensitivity [Unknown]
  - Contraindicated product administered [Unknown]
  - Hereditary haemochromatosis [Unknown]
  - Therapeutic response unexpected [Unknown]
